FAERS Safety Report 6072679-2 (Version None)
Quarter: 2009Q1

REPORT INFORMATION
  Report Type: 
  Country: None (occurrence: None)
  Receive Date: 20090210
  Receipt Date: 20090205
  Transmission Date: 20090719
  Serious: Yes (Hospitalization)
  Sender: FDA-Public Use
  Company Number: KR-PFIZER INC-2009163187

PATIENT

DRUGS (2)
  1. SUNITINIB MALATE [Suspect]
     Indication: BREAST CANCER METASTATIC
     Dosage: 37.5 MG, 1X/DAY
     Route: 048
     Dates: start: 20090120, end: 20090127
  2. SILYMARIN [Concomitant]
     Dosage: UNK
     Route: 048
     Dates: start: 20080724

REACTIONS (1)
  - HAEMATOMA [None]
